FAERS Safety Report 8810826 (Version 1)
Quarter: 2012Q4

REPORT INFORMATION
  Report Type: 
  Country: US (occurrence: US)
  Receive Date: 20120927
  Receipt Date: 20120927
  Transmission Date: 20130627
  Serious: Yes (Other)
  Sender: FDA-Public Use
  Company Number: US-MYLANLABS-2011S1021706

PATIENT
  Sex: Male

DRUGS (8)
  1. FOSAMAX [Suspect]
     Indication: OSTEOPOROSIS
     Dates: end: 201012
  2. FOSAMAX [Suspect]
     Indication: OSTEOPOROSIS PROPHYLAXIS
     Dates: end: 201012
  3. FOSAMAX [Suspect]
     Indication: OSTEOPENIA
     Dates: end: 201012
  4. FOSAMAX [Suspect]
     Indication: PROPHYLAXIS
     Dates: end: 201012
  5. ALENDRONATE SODIUM [Suspect]
     Indication: OSTEOPOROSIS
     Dates: end: 201012
  6. ALENDRONATE SODIUM [Suspect]
     Indication: OSTEOPOROSIS PROPHYLAXIS
     Dates: end: 201012
  7. ALENDRONATE SODIUM [Suspect]
     Indication: OSTEOPENIA
     Dates: end: 201012
  8. ALENDRONATE SODIUM [Suspect]
     Indication: PROPHYLAXIS
     Dates: end: 201012

REACTIONS (1)
  - Femur fracture [Unknown]
